FAERS Safety Report 8210232-2 (Version None)
Quarter: 2012Q1

REPORT INFORMATION
  Report Type: 
  Country: None (occurrence: None)
  Receive Date: 20120314
  Receipt Date: 20120123
  Transmission Date: 20120608
  Serious: No
  Sender: FDA-Public Use
  Company Number: US-ASTRAZENECA-2011SE61231

PATIENT
  Age: 57 Year
  Sex: Male

DRUGS (26)
  1. TOPROL-XL [Suspect]
     Route: 048
  2. NITROSTAT [Concomitant]
  3. FUROSEMIDE [Concomitant]
  4. GLUCOPHAGE [Concomitant]
  5. VEXOL [Concomitant]
  6. FLUOROMETHALONE [Concomitant]
  7. PRED FORTE [Concomitant]
  8. TENRUPTIC [Concomitant]
  9. METFORMIN [Concomitant]
  10. LISINOPRIL [Concomitant]
  11. METPROLOL [Concomitant]
  12. PRECASE [Concomitant]
  13. PILOCAR [Concomitant]
  14. LANTUS [Concomitant]
  15. TOPROL-XL [Suspect]
     Route: 048
  16. TRINIVIL [Concomitant]
  17. XALATAN [Concomitant]
  18. TRUSOPT [Concomitant]
  19. CRESTOR [Suspect]
     Route: 048
  20. AMARYL [Concomitant]
  21. TRIAMTERENE AND HYDROCHLOROTHIAZIDE [Concomitant]
  22. EFLONE [Concomitant]
  23. PRECLOSE [Concomitant]
  24. LANTUS [Concomitant]
  25. LEXAPRO [Concomitant]
  26. COSOPT [Concomitant]

REACTIONS (3)
  - EYE HAEMORRHAGE [None]
  - GLAUCOMA [None]
  - VISUAL IMPAIRMENT [None]
